FAERS Safety Report 21651979 (Version 3)
Quarter: 2022Q4

REPORT INFORMATION
  Report Type: Spontaneous
  Country: PL (occurrence: PL)
  Receive Date: 20221128
  Receipt Date: 20221230
  Transmission Date: 20230112
  Serious: Yes (Life-Threatening, Hospitalization, Other)
  Sender: FDA-Public Use
  Company Number: PL-CELONPHARMA-54_QUETIAPINE_2022

PATIENT
  Age: 70 Year
  Sex: Female

DRUGS (24)
  1. HALDOL [Suspect]
     Active Substance: HALOPERIDOL
     Indication: Delusion
     Dosage: TOTAL DOSE - 30 MG, DURING NIGHT SHIFT
     Route: 065
  2. HALDOL [Suspect]
     Active Substance: HALOPERIDOL
     Indication: Aggression
  3. DIAZEPAM [Suspect]
     Active Substance: DIAZEPAM
     Indication: Delusion
     Dosage: TOTAL DOSE - 20 MG, DURING NIGHT SHIFT
     Route: 065
  4. DIAZEPAM [Suspect]
     Active Substance: DIAZEPAM
     Indication: Aggression
  5. CLOZAPINE [Suspect]
     Active Substance: CLOZAPINE
     Indication: Delusion
     Dosage: 25 MG ADMINISTERED OVERNIGHT
     Route: 065
  6. CLOZAPINE [Suspect]
     Active Substance: CLOZAPINE
     Indication: Aggression
     Dosage: DOSE WAS INCREASED TO 25 MG IN THE MORNING  AND 50 MG IN THE EVENING
     Route: 065
  7. CLOZAPINE [Suspect]
     Active Substance: CLOZAPINE
     Indication: Moaning
  8. SELEGILINE [Suspect]
     Active Substance: SELEGILINE
     Indication: Parkinson^s disease
     Route: 065
  9. METOPROLOL [Suspect]
     Active Substance: METOPROLOL
     Indication: Cardiac disorder
     Dosage: 25 MG PER DAY
     Route: 065
  10. CLONAZEPAM [Suspect]
     Active Substance: CLONAZEPAM
     Indication: Delusion
     Dosage: TOTAL DOSE - 20 MG, DURING NIGHT SHIFT
     Route: 065
  11. CLONAZEPAM [Suspect]
     Active Substance: CLONAZEPAM
     Indication: Aggression
  12. TRAZODONE [Suspect]
     Active Substance: TRAZODONE HYDROCHLORIDE
     Indication: Sleep disorder
     Dosage: 75 MG PER DAY
     Route: 065
  13. TRAZODONE [Suspect]
     Active Substance: TRAZODONE HYDROCHLORIDE
     Indication: Insomnia
  14. QUETIAPINE [Suspect]
     Active Substance: QUETIAPINE
     Indication: Delusion
     Dosage: 25 MG OVERNIGHT
     Route: 065
  15. QUETIAPINE [Suspect]
     Active Substance: QUETIAPINE
     Indication: Aggression
  16. BENSERAZIDE\LEVODOPA [Suspect]
     Active Substance: BENSERAZIDE\LEVODOPA
     Indication: Parkinson^s disease
     Route: 065
  17. BENSERAZIDE\LEVODOPA [Suspect]
     Active Substance: BENSERAZIDE\LEVODOPA
     Dosage: 500 MG/PER DAY
     Route: 065
  18. MIDAZOLAM [Suspect]
     Active Substance: MIDAZOLAM
     Indication: Neuroleptic malignant syndrome
     Dosage: INFUSION OF MIDAZOLAM 50 MG IN 50 ML 0.9% NACL AT A DOSE OF 2 ML/H
     Route: 065
  19. LORAZEPAM [Suspect]
     Active Substance: LORAZEPAM
     Indication: Moaning
     Dosage: 1 MG-1MG-2MG
     Route: 065
  20. LORAZEPAM [Suspect]
     Active Substance: LORAZEPAM
     Indication: Delusion
  21. LORAZEPAM [Suspect]
     Active Substance: LORAZEPAM
     Indication: Neuroleptic malignant syndrome
  22. ROPINIROLE [Suspect]
     Active Substance: ROPINIROLE
     Indication: Parkinson^s disease
     Dosage: 4 MG PER DAY
     Route: 065
  23. AMANTADINE [Suspect]
     Active Substance: AMANTADINE
     Indication: Neuroleptic malignant syndrome
     Route: 065
  24. AMANTADINE [Suspect]
     Active Substance: AMANTADINE
     Indication: Parkinson^s disease
     Route: 065

REACTIONS (7)
  - Neuroleptic malignant syndrome [Unknown]
  - Pneumonia [Unknown]
  - Neuroleptic malignant syndrome [Unknown]
  - Rapid eye movement sleep behaviour disorder [Unknown]
  - Hypersensitivity [Unknown]
  - Therapy non-responder [Unknown]
  - Serotonin syndrome [Unknown]
